FAERS Safety Report 7722223-6 (Version None)
Quarter: 2011Q3

REPORT INFORMATION
  Report Type: 
  Country: None (occurrence: None)
  Receive Date: 20110831
  Receipt Date: 20110825
  Transmission Date: 20111222
  Serious: Yes (Congenital Anomaly, Other)
  Sender: FDA-Public Use
  Company Number: US-PFIZER INC-2011105663

PATIENT
  Sex: Female

DRUGS (5)
  1. ZOLOFT [Suspect]
     Dosage: 100 MG, HALF TABLET DAILY
     Route: 064
     Dates: start: 19981008
  2. PRENATAL VITAMINS [Concomitant]
     Dosage: UNK
     Route: 064
     Dates: start: 19981105
  3. ZOLOFT [Suspect]
     Indication: DEPRESSION
     Dosage: 50 MG, 1X/DAY
     Route: 064
     Dates: start: 19980908
  4. ROBITUSSIN AC [Concomitant]
     Indication: COUGH
     Dosage: UNK
     Route: 064
     Dates: start: 19990204
  5. TYLENOL W/ CODEINE [Concomitant]
     Indication: MIGRAINE
     Dosage: UNK
     Route: 064
     Dates: start: 19981105

REACTIONS (2)
  - MATERNAL EXPOSURE DURING PREGNANCY [None]
  - LUNG DISORDER [None]
